FAERS Safety Report 5658185-5 (Version None)
Quarter: 2008Q1

REPORT INFORMATION
  Report Type: 
  Country: None (occurrence: None)
  Receive Date: 20080306
  Receipt Date: 20080225
  Transmission Date: 20080703
  Serious: No
  Sender: FDA-Public Use
  Company Number: 20084741

PATIENT
  Sex: Female

DRUGS (1)
  1. LIORESAL [Suspect]
     Indication: MUSCLE SPASTICITY
     Dosage: 200 - 250 MCG, DAILY, INTRATHECAL
     Route: 037

REACTIONS (4)
  - CATHETER RELATED COMPLICATION [None]
  - HEADACHE [None]
  - INFECTION [None]
  - INTRACRANIAL HYPOTENSION [None]
